FAERS Safety Report 5763127-8 (Version None)
Quarter: 2008Q2

REPORT INFORMATION
  Report Type: 
  Country: None (occurrence: None)
  Receive Date: 20080609
  Receipt Date: 20080527
  Transmission Date: 20081010
  Serious: Yes (Hospitalization)
  Sender: FDA-Public Use
  Company Number: US-ELI_LILLY_AND_COMPANY-US200805001402

PATIENT
  Sex: Male
  Weight: 49.5 kg

DRUGS (3)
  1. STRATTERA [Suspect]
     Indication: ATTENTION DEFICIT/HYPERACTIVITY DISORDER
     Dosage: UNK, UNK
     Dates: start: 20030101, end: 20080201
  2. BACTRIM [Concomitant]
  3. M.V.I. [Concomitant]
     Dosage: UNK, DAILY (1/D)

REACTIONS (6)
  - ABNORMAL DREAMS [None]
  - ACNE CYSTIC [None]
  - DEPRESSION [None]
  - FLAT AFFECT [None]
  - HALLUCINATION [None]
  - SUICIDAL IDEATION [None]
